FAERS Safety Report 10066886 (Version 2)
Quarter: 2014Q2

REPORT INFORMATION
  Report Type: Spontaneous
  Country: NL (occurrence: NL)
  Receive Date: 20140408
  Receipt Date: 20140422
  Transmission Date: 20141212
  Serious: Yes (Death, Other)
  Sender: FDA-Public Use
  Company Number: NL-ROCHE-1380111

PATIENT
  Age: 72 Year
  Sex: Female

DRUGS (3)
  1. HERCEPTIN [Suspect]
     Indication: ADJUVANT THERAPY
     Route: 042
  2. TAXOTERE [Suspect]
     Indication: ADJUVANT THERAPY
     Route: 065
  3. CARBOPLATIN [Suspect]
     Indication: ADJUVANT THERAPY
     Route: 065

REACTIONS (2)
  - Duodenal ulcer perforation [Fatal]
  - Pancreatitis [Unknown]
